FAERS Safety Report 6610188-X (Version None)
Quarter: 2010Q1

REPORT INFORMATION
  Report Type: 
  Country: None (occurrence: None)
  Receive Date: 20100302
  Receipt Date: 20100215
  Transmission Date: 20100710
  Serious: Yes (Other)
  Sender: FDA-Public Use
  Company Number: PR-JNJFOC-20100300492

PATIENT
  Age: 71 Year
  Sex: Female
  Weight: 70.31 kg

DRUGS (3)
  1. TYLENOL ARTHIRITS PAIN ER [Suspect]
     Route: 048
  2. TYLENOL ARTHIRITS PAIN ER [Suspect]
     Indication: ARTHRALGIA
     Route: 048
  3. METFORMIN HCL [Concomitant]
     Indication: DIABETES MELLITUS

REACTIONS (7)
  - ABDOMINAL PAIN UPPER [None]
  - BLOOD PRESSURE DECREASED [None]
  - DEHYDRATION [None]
  - DIARRHOEA [None]
  - DYSGEUSIA [None]
  - PRODUCT QUALITY ISSUE [None]
  - VOMITING [None]
